FAERS Safety Report 9307528 (Version 2)
Quarter: 2013Q2

REPORT INFORMATION
  Report Type: Spontaneous
  Country: US (occurrence: US)
  Receive Date: 20130524
  Receipt Date: 20130618
  Transmission Date: 20140414
  Serious: No
  Sender: FDA-Public Use
  Company Number: US-TEVA-407521USA

PATIENT
  Age: 66 Year
  Sex: Male

DRUGS (2)
  1. NUVIGIL [Suspect]
     Indication: SOMNOLENCE
  2. NUVIGIL [Suspect]
     Indication: SLEEP APNOEA SYNDROME

REACTIONS (2)
  - Rash [Unknown]
  - Urticaria [Not Recovered/Not Resolved]
